FAERS Safety Report 5354053-7 (Version None)
Quarter: 2007Q2

REPORT INFORMATION
  Report Type: 
  Country: None (occurrence: None)
  Receive Date: 20070612
  Receipt Date: 20070607
  Transmission Date: 20071010
  Serious: Yes (Disabling)
  Sender: FDA-Public Use
  Company Number: A0654624A

PATIENT
  Age: 36 Year
  Sex: Female

DRUGS (4)
  1. FLONASE [Suspect]
     Indication: DRUG USE FOR UNKNOWN INDICATION
     Route: 045
  2. VERAMYST [Suspect]
     Indication: NASAL CONGESTION
     Route: 045
     Dates: start: 20070606
  3. EFFEXOR [Concomitant]
  4. QVAR 40 [Concomitant]

REACTIONS (3)
  - DYSPHONIA [None]
  - NASAL CONGESTION [None]
  - THROAT IRRITATION [None]
